FAERS Safety Report 4560510-3 (Version None)
Quarter: 2005Q1

REPORT INFORMATION
  Report Type: 
  Country: None (occurrence: None)
  Receive Date: 20050125
  Receipt Date: 20050118
  Transmission Date: 20050727
  Serious: Yes (Life-Threatening, Hospitalization, Disabling)
  Sender: FDA-Public Use
  Company Number: US-MERCK-0501USA02789

PATIENT
  Age: 53 Year
  Sex: Male

DRUGS (5)
  1. VIOXX [Suspect]
     Indication: ARTHRITIS
     Route: 048
     Dates: start: 20000825, end: 20010201
  2. ASACOL [Concomitant]
     Route: 065
  3. CLARITIN [Concomitant]
     Route: 065
  4. CIMETIDINE [Concomitant]
     Route: 065
  5. NASACORT [Concomitant]
     Route: 065

REACTIONS (1)
  - MITRAL VALVE DISEASE [None]
